FAERS Safety Report 8472579-4 (Version None)
Quarter: 2012Q2

REPORT INFORMATION
  Report Type: 
  Country: None (occurrence: None)
  Receive Date: 20120627
  Receipt Date: 20110927
  Transmission Date: 20120825
  Serious: Yes (Hospitalization)
  Sender: FDA-Public Use
  Company Number: US-AMGEN-USASP2011039612

PATIENT
  Age: 62 Year
  Sex: Female

DRUGS (3)
  1. PROCRIT [Suspect]
     Dosage: 20000 IU, UNK
     Dates: start: 20110714, end: 20110714
  2. PROCRIT [Suspect]
     Dosage: 20000 UNK, UNK
     Dates: start: 20110714
  3. PROCRIT [Suspect]
     Indication: HAEMOGLOBIN DECREASED
     Dosage: UNK
     Dates: start: 20110630

REACTIONS (1)
  - THROMBOSIS [None]
